FAERS Safety Report 4509198-8 (Version None)
Quarter: 2004Q4

REPORT INFORMATION
  Report Type: 
  Country: None (occurrence: None)
  Receive Date: 20041025
  Receipt Date: 20040113
  Transmission Date: 20050328
  Serious: Yes (Hospitalization, Other)
  Sender: FDA-Public Use
  Company Number: NSADSS2002010570

PATIENT
  Age: 53 Year
  Sex: Female
  Weight: 55.7924 kg

DRUGS (5)
  1. REMICADE [Suspect]
     Indication: RHEUMATOID ARTHRITIS
     Dosage: , 1 IN 1 AS NECESSARY, INTRAVENOUS; 200 MG, INTRAVENOUS DRIP
     Route: 041
     Dates: start: 20010501, end: 20010501
  2. REMICADE [Suspect]
     Indication: RHEUMATOID ARTHRITIS
     Dosage: , 1 IN 1 AS NECESSARY, INTRAVENOUS; 200 MG, INTRAVENOUS DRIP
     Route: 041
     Dates: start: 20010611, end: 20010611
  3. REMICADE [Suspect]
     Indication: RHEUMATOID ARTHRITIS
     Dosage: , 1 IN 1 AS NECESSARY, INTRAVENOUS; 200 MG, INTRAVENOUS DRIP
     Route: 041
     Dates: start: 20010625, end: 20010625
  4. METHOTREXATE [Concomitant]
  5. PREDNISONE [Concomitant]

REACTIONS (2)
  - CERVICAL GLAND TUBERCULOSIS [None]
  - HEADACHE [None]
